FAERS Safety Report 8355571-X (Version None)
Quarter: 2012Q2

REPORT INFORMATION
  Report Type: 
  Country: None (occurrence: None)
  Receive Date: 20120513
  Receipt Date: 20120504
  Transmission Date: 20120825
  Serious: Yes (Hospitalization, Other)
  Sender: FDA-Public Use
  Company Number: CA-ELI_LILLY_AND_COMPANY-CA201205002145

PATIENT
  Age: 73 Year
  Sex: Female

DRUGS (6)
  1. VITAMIN B-12 [Concomitant]
     Dosage: UNK, MONTHLY (1/M)
  2. INSULIN [Concomitant]
  3. FORTEO [Suspect]
     Indication: OSTEOPOROSIS
     Dosage: 20 UG, QD
     Route: 058
     Dates: start: 20100511, end: 20110910
  4. CALCIUM [Concomitant]
  5. VITAMIN D [Concomitant]
     Dosage: UNK, WEEKLY (1/W)
  6. TYLENOL (CAPLET) [Concomitant]

REACTIONS (5)
  - INADEQUATE ANALGESIA [None]
  - HOSPITALISATION [None]
  - POST PROCEDURAL COMPLICATION [None]
  - ABDOMINAL PAIN [None]
  - GASTROINTESTINAL CARCINOMA [None]
